FAERS Safety Report 10176219 (Version 1)
Quarter: 2014Q2

REPORT INFORMATION
  Report Type: Spontaneous
  Country: US (occurrence: None)
  Receive Date: 20140515
  Receipt Date: 20140515
  Transmission Date: 20141212
  Serious: Yes (Hospitalization, Other)
  Sender: FDA-Public Use
  Company Number: None

PATIENT
  Age: 67 Year
  Sex: Male
  Weight: 70.31 kg

DRUGS (5)
  1. BENICAR [Suspect]
     Indication: HYPERTENSION
     Dosage: 20 MG 1-DAILY 1AM MOUTH
     Dates: end: 20140421
  2. LORTAB [Concomitant]
  3. XANAFLEX [Concomitant]
  4. SYNTHROID [Concomitant]
  5. BYSTOLIC 5MG? [Concomitant]

REACTIONS (1)
  - Blood pressure abnormal [None]
